FAERS Safety Report 23368913 (Version 1)
Quarter: 2024Q1

REPORT INFORMATION
  Report Type: Report from Study
  Country: US (occurrence: US)
  Receive Date: 20240105
  Receipt Date: 20240105
  Transmission Date: 20240410
  Serious: Yes (Hospitalization, Other)
  Sender: FDA-Public Use
  Company Number: US-AZURITY PHARMACEUTICALS, INC.-US-2023ARB005102

PATIENT

DRUGS (3)
  1. DEXMEDETOMIDINE HYDROCHLORIDE [Suspect]
     Active Substance: DEXMEDETOMIDINE HYDROCHLORIDE
     Indication: Product used for unknown indication
     Dosage: UNK
  2. NICARDIPINE [Concomitant]
     Active Substance: NICARDIPINE
     Indication: Aortic dissection
     Dosage: UNK
     Route: 042
  3. ESMOLOL [Concomitant]
     Active Substance: ESMOLOL HYDROCHLORIDE
     Indication: Aortic dissection
     Dosage: UNK

REACTIONS (3)
  - Haemodynamic instability [Unknown]
  - Bradycardia [Unknown]
  - Hypotension [Unknown]
